FAERS Safety Report 6235968-4 (Version None)
Quarter: 2009Q2

REPORT INFORMATION
  Report Type: 
  Country: None (occurrence: None)
  Receive Date: 20090619
  Receipt Date: 20090612
  Transmission Date: 20091009
  Serious: Yes (Life-Threatening, Hospitalization, Other)
  Sender: FDA-Public Use
  Company Number: PHHY2009JP21960

PATIENT
  Sex: Female

DRUGS (9)
  1. DIOVAN [Suspect]
     Indication: HYPERTENSION
     Dosage: 40 MG, UNK
     Route: 048
     Dates: start: 20090601, end: 20090602
  2. ATELEC [Suspect]
     Indication: HYPERTENSION
     Dosage: UNK
     Dates: start: 20090601, end: 20090602
  3. ZANTAC [Concomitant]
     Indication: GASTRIC ULCER
     Dosage: 300 MG, UNK
     Route: 042
     Dates: start: 20090528
  4. GLYCEOL [Concomitant]
     Indication: BRAIN OEDEMA
     Dosage: 400 ML, UNK
     Dates: start: 20090530, end: 20090608
  5. DALACIN-S [Concomitant]
     Indication: PNEUMONIA
     Dosage: 1200 MG, UNK
     Route: 042
     Dates: start: 20090530, end: 20090605
  6. TRANSAMIN [Concomitant]
     Indication: CEREBRAL HAEMORRHAGE
     Dosage: 1 G, UNK
     Route: 042
     Dates: start: 20090528, end: 20090530
  7. SOLU-MEDROL [Concomitant]
     Indication: LARYNGEAL OEDEMA
     Dosage: 125 MG, BID
     Route: 042
     Dates: start: 20090602, end: 20090606
  8. TIENAM [Concomitant]
     Indication: PNEUMONIA
     Dosage: 1 G, UNK
     Route: 042
     Dates: start: 20090605, end: 20090608
  9. NORVASC [Concomitant]
     Indication: HYPERTENSION
     Dosage: 5 MG, UNK
     Route: 048
     Dates: start: 20090603

REACTIONS (7)
  - EPIGLOTTITIS [None]
  - INFECTION [None]
  - LARYNGEAL OEDEMA [None]
  - LARYNGITIS [None]
  - OXYGEN SATURATION DECREASED [None]
  - PHARYNGEAL OEDEMA [None]
  - WHEEZING [None]
